FAERS Safety Report 4777032-7 (Version None)
Quarter: 2005Q3

REPORT INFORMATION
  Report Type: 
  Country: None (occurrence: None)
  Receive Date: 20050923
  Receipt Date: 20050914
  Transmission Date: 20060218
  Serious: Yes (Death)
  Sender: FDA-Public Use
  Company Number: JP-BRISTOL-MYERS SQUIBB COMPANY-13111414

PATIENT
  Age: 75 Year
  Sex: Female

DRUGS (2)
  1. TAXOL [Suspect]
     Indication: OVARIAN CANCER
     Route: 042
  2. PARAPLATIN [Concomitant]
     Indication: OVARIAN CANCER
     Route: 042

REACTIONS (1)
  - INTESTINAL PERFORATION [None]
